FAERS Safety Report 8131504-6 (Version None)
Quarter: 2012Q1

REPORT INFORMATION
  Report Type: 
  Country: None (occurrence: None)
  Receive Date: 20120208
  Receipt Date: 20120201
  Transmission Date: 20120608
  Serious: Yes (Other)
  Sender: FDA-Public Use
  Company Number: DSA_54901_2012

PATIENT
  Age: 57 Year
  Sex: Female

DRUGS (1)
  1. XENAZINE [Suspect]
     Indication: HUNTINGTON'S DISEASE
     Dosage: 12.5 MG, QD, BID,  ORAL
     Route: 048
     Dates: start: 20111201

REACTIONS (3)
  - TRISMUS [None]
  - VERTIGO [None]
  - MIGRAINE [None]
